FAERS Safety Report 7250274-7 (Version None)
Quarter: 2011Q1

REPORT INFORMATION
  Report Type: 
  Country: None (occurrence: None)
  Receive Date: 20110119
  Receipt Date: 20110103
  Transmission Date: 20110831
  Serious: Yes (Hospitalization)
  Sender: FDA-Public Use
  Company Number: UTC-003952

PATIENT
  Age: 47 Year
  Sex: Female
  Weight: 44.5 kg

DRUGS (3)
  1. REMODULIN (1 MILLIGRAM/MILLILITERS, INJECTION FOR INFUSION) (TREPROSTI [Suspect]
     Dosage: 66.96 UG/KG (0.0465 UG/KG, 1 IN 1 MIN) INTRAVENOUS
     Route: 042
  2. DIURETICS [Concomitant]
  3. COUMADIN [Concomitant]

REACTIONS (3)
  - SYNCOPE [None]
  - HEADACHE [None]
  - ABDOMINAL DISTENSION [None]
